FAERS Safety Report 9496324 (Version 1)
Quarter: 2013Q3

REPORT INFORMATION
  Report Type: Spontaneous
  Country: US (occurrence: US)
  Receive Date: 20130904
  Receipt Date: 20130904
  Transmission Date: 20140515
  Serious: Yes (Hospitalization)
  Sender: FDA-Public Use
  Company Number: US-GENZYME-RENA-1002174

PATIENT
  Age: 88 Year
  Sex: Male

DRUGS (2)
  1. RENVELA [Suspect]
     Indication: HYPERPHOSPHATAEMIA
     Dosage: UNK (DOSE TITRATED)
     Route: 065
     Dates: start: 2011, end: 201307
  2. RENVELA [Suspect]
     Dosage: 9.6 G, QD (THREE TABLETS WITH MELAS AND ONE SNACK
     Route: 065
     Dates: start: 201308

REACTIONS (3)
  - Headache [Recovered/Resolved]
  - Headache [Unknown]
  - Abdominal discomfort [Unknown]
